FAERS Safety Report 25882692 (Version 2)
Quarter: 2025Q4

REPORT INFORMATION
  Report Type: Spontaneous
  Country: US (occurrence: US)
  Receive Date: 20251006
  Receipt Date: 20251124
  Transmission Date: 20260118
  Serious: Yes (Hospitalization, Other)
  Sender: ELI LILLY AND COMPANY
  Company Number: US-ELI_LILLY_AND_COMPANY-US202509027664

PATIENT
  Age: 79 Year
  Sex: Female
  Weight: 50.794 kg

DRUGS (2)
  1. KISUNLA [Suspect]
     Active Substance: DONANEMAB-AZBT
     Indication: Dementia Alzheimer^s type
     Dosage: 350 MG, UNKNOWN (1ST INFUSION)
     Route: 065
     Dates: start: 20250707
  2. KISUNLA [Suspect]
     Active Substance: DONANEMAB-AZBT
     Dosage: 700 MG, UNKNOWN (2ND INFUSION)
     Route: 065
     Dates: start: 20250804

REACTIONS (12)
  - Acute respiratory failure [Recovered/Resolved]
  - Atrial flutter [Recovered/Resolved]
  - Pneumonia [Unknown]
  - Sepsis [Recovering/Resolving]
  - Atrial fibrillation [Recovered/Resolved]
  - Hypertransaminasaemia [Recovering/Resolving]
  - Infusion related reaction [Recovered/Resolved]
  - Leukopenia [Recovered/Resolved]
  - Normocytic anaemia [Recovering/Resolving]
  - Troponin increased [Unknown]
  - Balance disorder [Unknown]
  - Hypoaesthesia [Unknown]

NARRATIVE: CASE EVENT DATE: 20250804
